FAERS Safety Report 16718489 (Version 2)
Quarter: 2020Q2

REPORT INFORMATION
  Report Type: Spontaneous
  Country: CA (occurrence: CA)
  Receive Date: 20190820
  Receipt Date: 20200403
  Transmission Date: 20200713
  Serious: Yes (Other)
  Sender: FDA-Public Use
  Company Number: CA-SA-2019SA217185

PATIENT
  Age: 48 Year
  Sex: Female

DRUGS (2)
  1. ARAVA [Suspect]
     Active Substance: LEFLUNOMIDE
     Indication: PRODUCT USED FOR UNKNOWN INDICATION
     Dosage: UNK
     Route: 065
  2. XELJANZ XR [Interacting]
     Active Substance: TOFACITINIB CITRATE
     Indication: RHEUMATOID ARTHRITIS
     Dosage: 11.0 MG, TID
     Route: 048
     Dates: start: 201812

REACTIONS (5)
  - Diarrhoea [Recovered/Resolved]
  - Drug interaction [Unknown]
  - Bowel movement irregularity [Unknown]
  - Insomnia [Unknown]
  - Immunosuppression [Unknown]
